FAERS Safety Report 6983664-8 (Version None)
Quarter: 2010Q3

REPORT INFORMATION
  Report Type: 
  Country: None (occurrence: None)
  Receive Date: 20100914
  Receipt Date: 20081028
  Transmission Date: 20110219
  Serious: No
  Sender: FDA-Public Use
  Company Number: US-WYE-H06596308

PATIENT
  Sex: Female

DRUGS (1)
  1. ADVIL LIQUI-GELS [Suspect]
     Dosage: ABOUT 30 TABLETS
     Route: 048
     Dates: start: 20070101

REACTIONS (3)
  - BACK PAIN [None]
  - OVERDOSE [None]
  - RENAL PAIN [None]
